FAERS Safety Report 11996042 (Version 1)
Quarter: 2016Q1

REPORT INFORMATION
  Report Type: Spontaneous
  Country: US (occurrence: US)
  Receive Date: 20160203
  Receipt Date: 20160203
  Transmission Date: 20160526
  Serious: Yes (Other)
  Sender: FDA-Public Use
  Company Number: US-BAYER-2016-017011

PATIENT
  Age: 72 Year
  Sex: Female
  Weight: 72.56 kg

DRUGS (3)
  1. ALKA-SELTZER PLUS COLD FORMULA [Suspect]
     Active Substance: ASPIRIN\CHLORPHENIRAMINE MALEATE\PHENYLEPHRINE BITARTRATE
     Indication: HEADACHE
     Dosage: 1 DF, PRN
     Route: 048
     Dates: start: 2005, end: 20160113
  2. LEVOTHYROXINE. [Concomitant]
     Active Substance: LEVOTHYROXINE
  3. ALKA-SELTZER PLUS COLD FORMULA [Suspect]
     Active Substance: ASPIRIN\CHLORPHENIRAMINE MALEATE\PHENYLEPHRINE BITARTRATE
     Indication: SLEEP DISORDER THERAPY

REACTIONS (2)
  - Product use issue [None]
  - Clostridium difficile infection [Not Recovered/Not Resolved]

NARRATIVE: CASE EVENT DATE: 2005
